FAERS Safety Report 17087249 (Version 3)
Quarter: 2022Q1

REPORT INFORMATION
  Report Type: Spontaneous
  Country: JP (occurrence: JP)
  Receive Date: 20191128
  Receipt Date: 20220131
  Transmission Date: 20220424
  Serious: Yes (Death, Hospitalization, Other)
  Sender: FDA-Public Use
  Company Number: JP-NBI-J201924282

PATIENT
  Age: 78 Year
  Sex: Female

DRUGS (1)
  1. IDARUCIZUMAB [Suspect]
     Active Substance: IDARUCIZUMAB
     Indication: Procoagulant therapy
     Route: 042
     Dates: start: 20190917, end: 20190917

REACTIONS (2)
  - Intraventricular haemorrhage [Fatal]
  - Cerebral infarction [Fatal]

NARRATIVE: CASE EVENT DATE: 20190917
